FAERS Safety Report 14471586 (Version 1)
Quarter: 2018Q1

REPORT INFORMATION
  Report Type: Spontaneous
  Country: MY (occurrence: MY)
  Receive Date: 20180131
  Receipt Date: 20180131
  Transmission Date: 20180509
  Serious: Yes (Other)
  Sender: FDA-Public Use
  Company Number: MY-PFIZER INC-2018030653

PATIENT
  Age: 54 Year
  Sex: Female

DRUGS (5)
  1. LETROZOLE. [Concomitant]
     Active Substance: LETROZOLE
     Dosage: 2.5 MG, ONCE DAILY
  2. PERINDOPRIL [Concomitant]
     Active Substance: PERINDOPRIL
     Indication: HYPERTENSION
     Dosage: 8 MG, ONCE DAILY
  3. HYDROCHLOROTHIAZIDE. [Concomitant]
     Active Substance: HYDROCHLOROTHIAZIDE
     Indication: HYPERTENSION
     Dosage: 12.5 MG, ONCE DAILY
  4. AMLODIPINE [Concomitant]
     Active Substance: AMLODIPINE BESYLATE
     Indication: HYPERTENSION
     Dosage: 7.5 MG, ONCE DAILY
  5. IBRANCE [Suspect]
     Active Substance: PALBOCICLIB
     Indication: BREAST CANCER METASTATIC
     Dosage: 125 MG, ONCE DAILY (3 WEEKS ON, 1 WEEK OFF)
     Route: 048
     Dates: start: 20171207, end: 20171220

REACTIONS (4)
  - Neutropenia [Recovering/Resolving]
  - Folate deficiency [Unknown]
  - Pancytopenia [Unknown]
  - Vitamin B12 deficiency [Unknown]

NARRATIVE: CASE EVENT DATE: 20171220
